FAERS Safety Report 5565293-6 (Version None)
Quarter: 2007Q4

REPORT INFORMATION
  Report Type: 
  Country: None (occurrence: None)
  Receive Date: 20071218
  Receipt Date: 20020304
  Transmission Date: 20080405
  Serious: Yes (Death, Hospitalization, Disabling, Other)
  Sender: FDA-Public Use
  Company Number: US-ROCHE-308424

PATIENT
  Age: 64 Year
  Sex: Male

DRUGS (22)
  1. CARDENE SR [Suspect]
     Indication: DRUG USE FOR UNKNOWN INDICATION
     Route: 048
  2. REZULIN [Interacting]
     Route: 048
     Dates: start: 19980114, end: 19981012
  3. CORDARONE [Interacting]
     Route: 065
  4. ACCUPRIL [Suspect]
     Indication: DRUG USE FOR UNKNOWN INDICATION
     Route: 048
  5. DELTASONE [Suspect]
     Indication: DRUG USE FOR UNKNOWN INDICATION
     Route: 048
     Dates: start: 19981014
  6. DELTASONE [Suspect]
     Dosage: EVERY MORNING.
     Route: 048
  7. DELTASONE [Suspect]
     Route: 048
     Dates: start: 19981026
  8. AVAPRO [Suspect]
     Indication: DRUG USE FOR UNKNOWN INDICATION
     Route: 065
     Dates: start: 19980113, end: 19981020
  9. GLIPIZIDE [Concomitant]
  10. NIFEDIPINE [Concomitant]
  11. LANOXIN [Concomitant]
  12. ACETAMINOPHEN AND HYDROCODONE BITARTRATE [Concomitant]
     Dates: start: 19981022
  13. DAYPRO [Concomitant]
     Dates: start: 19980106
  14. BACTROBAN [Concomitant]
     Dates: start: 19980126
  15. OCUFLOX [Concomitant]
     Dates: start: 19980818
  16. KAYEXALATE [Concomitant]
     Dates: start: 19981027, end: 19981027
  17. GLUCOTROL [Concomitant]
  18. PREDNISONE [Concomitant]
     Dates: start: 19981015
  19. CIPROFLOXACIN HCL [Concomitant]
     Dates: start: 19980106
  20. PROPOXYPHENE NAPSYLATE W/ ACETAMINOPHEN [Concomitant]
  21. CEPHALEXIN [Concomitant]
     Dates: start: 19980202
  22. CORMAX [Concomitant]
     Dates: start: 19981021

REACTIONS (35)
  - ABASIA [None]
  - ACUTE RESPIRATORY DISTRESS SYNDROME [None]
  - ANTIDIURETIC HORMONE ABNORMALITY [None]
  - ASTHENIA [None]
  - ATRIOVENTRICULAR BLOCK FIRST DEGREE [None]
  - BLADDER DISORDER [None]
  - CARDIAC ARREST [None]
  - CHOKING SENSATION [None]
  - CONFUSIONAL STATE [None]
  - COUGH [None]
  - DERMAL CYST [None]
  - DIABETIC NEPHROPATHY [None]
  - DIARRHOEA [None]
  - DIZZINESS [None]
  - DRUG INTERACTION [None]
  - FATIGUE [None]
  - FEELING HOT [None]
  - FLATULENCE [None]
  - HEPATIC FAILURE [None]
  - HEPATITIS [None]
  - HYPERTENSION [None]
  - HYPOXIA [None]
  - KETONURIA [None]
  - LEUKOCYTOSIS [None]
  - MALAISE [None]
  - MYOCARDIAL ISCHAEMIA [None]
  - OEDEMA [None]
  - OSTEOARTHRITIS [None]
  - PLEURAL EFFUSION [None]
  - POLYMYOSITIS [None]
  - PULMONARY OEDEMA [None]
  - RENAL FAILURE ACUTE [None]
  - RHABDOMYOLYSIS [None]
  - RHEUMATOID FACTOR POSITIVE [None]
  - SKIN DISCOLOURATION [None]
